FAERS Safety Report 25210038 (Version 2)
Quarter: 2025Q2

REPORT INFORMATION
  Report Type: Report from Study
  Country: MX (occurrence: MX)
  Receive Date: 20250417
  Receipt Date: 20250422
  Transmission Date: 20250716
  Serious: No
  Sender: NOVARTIS
  Company Number: MX-002147023-NVSC2025MX063277

PATIENT
  Sex: Female
  Weight: 82 kg

DRUGS (2)
  1. HYDROCHLOROTHIAZIDE\VALSARTAN [Suspect]
     Active Substance: HYDROCHLOROTHIAZIDE\VALSARTAN
     Indication: Blood pressure abnormal
     Dosage: 1 DOSAGE FORM (80/12.5 MG), QD
     Route: 048
     Dates: start: 20211027, end: 20241023
  2. DIOVAN [Suspect]
     Active Substance: VALSARTAN
     Indication: Blood pressure abnormal
     Dosage: 1 DOSAGE FORM (80 MG) , QD
     Route: 048
     Dates: start: 20241024

REACTIONS (2)
  - Blood pressure decreased [Recovered/Resolved]
  - Dyspnoea [Unknown]
